FAERS Safety Report 24811848 (Version 1)
Quarter: 2025Q1

REPORT INFORMATION
  Report Type: Spontaneous
  Country: US (occurrence: US)
  Receive Date: 20250106
  Receipt Date: 20250106
  Transmission Date: 20250409
  Serious: No
  Sender: BRAINTREE
  Company Number: US-BRAINTREE LABORATORIES, INC.-2024BTE00401

PATIENT
  Age: 79 Year
  Sex: Female
  Weight: 62.585 kg

DRUGS (4)
  1. SUTAB [Suspect]
     Active Substance: MAGNESIUM SULFATE\POTASSIUM CHLORIDE\SODIUM SULFATE
     Indication: Colonoscopy
     Route: 048
     Dates: start: 20240627
  2. SUTAB [Suspect]
     Active Substance: MAGNESIUM SULFATE\POTASSIUM CHLORIDE\SODIUM SULFATE
     Indication: Endoscopy
  3. PANTOPRAZOLE [Concomitant]
     Active Substance: PANTOPRAZOLE
  4. METFORMIN [Concomitant]
     Active Substance: METFORMIN HYDROCHLORIDE

REACTIONS (6)
  - Chills [Not Recovered/Not Resolved]
  - Feeling abnormal [Not Recovered/Not Resolved]
  - Salivary hypersecretion [Not Recovered/Not Resolved]
  - Abdominal distension [Not Recovered/Not Resolved]
  - Abdominal pain upper [Not Recovered/Not Resolved]
  - Nausea [Not Recovered/Not Resolved]

NARRATIVE: CASE EVENT DATE: 20240627
